FAERS Safety Report 7544392-3 (Version None)
Quarter: 2011Q2

REPORT INFORMATION
  Report Type: 
  Country: None (occurrence: None)
  Receive Date: 20110613
  Receipt Date: 20080609
  Transmission Date: 20111010
  Serious: Yes (Hospitalization, Other)
  Sender: FDA-Public Use
  Company Number: PHHY2008CA10131

PATIENT
  Sex: Female

DRUGS (4)
  1. DIOVAN [Suspect]
     Indication: HYPERTENSION
     Dosage: 80 MG/DAILY
     Route: 048
     Dates: start: 20071210, end: 20071231
  2. ASPIRIN [Concomitant]
  3. ENTROPHEN [Concomitant]
  4. SYNTHROID [Concomitant]

REACTIONS (1)
  - INFARCTION [None]
